FAERS Safety Report 9766028 (Version 1)
Quarter: 2013Q4

REPORT INFORMATION
  Report Type: Spontaneous
  Country: US (occurrence: US)
  Receive Date: 20131217
  Receipt Date: 20131217
  Transmission Date: 20140711
  Serious: No
  Sender: FDA-Public Use
  Company Number: US-GLAXOSMITHKLINE-A1015546A

PATIENT
  Age: 31 Year
  Sex: Male
  Weight: 65.9 kg

DRUGS (4)
  1. VOTRIENT [Suspect]
     Indication: DESMOPLASTIC SMALL ROUND CELL TUMOUR
     Dosage: 400MG TWICE PER DAY
     Route: 048
     Dates: start: 201301
  2. LOMOTIL [Concomitant]
  3. REMERON [Concomitant]
  4. IMODIUM ADVANCED [Concomitant]

REACTIONS (6)
  - Fatigue [Unknown]
  - Hair colour changes [Unknown]
  - Weight decreased [Unknown]
  - Decreased appetite [Unknown]
  - Nausea [Unknown]
  - Vomiting [Unknown]
